FAERS Safety Report 7668459-4 (Version None)
Quarter: 2011Q3

REPORT INFORMATION
  Report Type: 
  Country: None (occurrence: None)
  Receive Date: 20110808
  Receipt Date: 20110725
  Transmission Date: 20111222
  Serious: Yes (Hospitalization)
  Sender: FDA-Public Use
  Company Number: DE-MYLANLABS-2011S1015667

PATIENT
  Age: 47 Year
  Sex: Female

DRUGS (2)
  1. VERAPAMIL [Suspect]
     Route: 065
  2. DOXAZOSIN MESYLATE [Suspect]
     Route: 065

REACTIONS (1)
  - ATRIAL FIBRILLATION [None]
